FAERS Safety Report 20489793 (Version 3)
Quarter: 2022Q2

REPORT INFORMATION
  Report Type: Spontaneous
  Country: JP (occurrence: JP)
  Receive Date: 20220218
  Receipt Date: 20220519
  Transmission Date: 20220720
  Serious: No
  Sender: FDA-Public Use
  Company Number: JP-GLAXOSMITHKLINE-JP2022JPN027011

PATIENT

DRUGS (8)
  1. SOTROVIMAB [Suspect]
     Active Substance: SOTROVIMAB
     Indication: COVID-19
     Dosage: 500 MG DAILY
     Route: 041
     Dates: start: 20220211, end: 20220211
  2. DIPHENHYDRAMINE [Suspect]
     Active Substance: DIPHENHYDRAMINE
     Indication: Dermatitis atopic
     Dosage: UNK
     Dates: start: 20211025
  3. CLARITIN [Suspect]
     Active Substance: LORATADINE
     Indication: Dermatitis atopic
     Dosage: 10 MG DAILY
     Route: 048
     Dates: start: 20211025
  4. DIETARY SUPPLEMENT\PROBIOTICS [Suspect]
     Active Substance: DIETARY SUPPLEMENT\PROBIOTICS
     Indication: Diarrhoea
     Dosage: 3 DF DAILY
     Route: 048
     Dates: start: 20211228
  5. GASTER [Suspect]
     Active Substance: FAMOTIDINE
     Indication: Abdominal pain upper
     Dosage: 20 MG DAILY
     Route: 048
     Dates: start: 20211228
  6. FERROUS SULFATE [Suspect]
     Active Substance: FERROUS SULFATE
     Indication: Iron deficiency anaemia
     Dosage: 105 MG DAILY
     Route: 048
     Dates: start: 20220211, end: 20220224
  7. ACETAMINOPHEN [Suspect]
     Active Substance: ACETAMINOPHEN
     Indication: Pain
     Dosage: 400 MG PER DOSE,  WHEN PAIN AND PYREXIA OCCURRED
     Route: 048
     Dates: start: 20220211
  8. ACETAMINOPHEN [Suspect]
     Active Substance: ACETAMINOPHEN
     Indication: Pyrexia

REACTIONS (2)
  - Exposure during pregnancy [Unknown]
  - Live birth [Unknown]
